FAERS Safety Report 23122407 (Version 1)
Quarter: 2023Q4

REPORT INFORMATION
  Report Type: Spontaneous
  Country: CN (occurrence: CN)
  Receive Date: 20231030
  Receipt Date: 20231030
  Transmission Date: 20240110
  Serious: No
  Sender: FDA-Public Use
  Company Number: CN-009507513-2310CHN010017

PATIENT
  Age: 82 Year
  Sex: Female
  Weight: 58 kg

DRUGS (1)
  1. LAGEVRIO [Suspect]
     Active Substance: MOLNUPIRAVIR
     Indication: COVID-19 treatment
     Dosage: 800 MG, BID
     Route: 048
     Dates: start: 20231009, end: 20231015

REACTIONS (2)
  - Nausea [Recovering/Resolving]
  - Incorrect product administration duration [Unknown]

NARRATIVE: CASE EVENT DATE: 20231009
